FAERS Safety Report 10559140 (Version 1)
Quarter: 2014Q4

REPORT INFORMATION
  Report Type: Not Available
  Country: FR (occurrence: FR)
  Receive Date: 20141103
  Receipt Date: 20141103
  Transmission Date: 20150529
  Serious: Yes (Hospitalization)
  Sender: FDA-Public Use
  Company Number: FR-BEH-2014045995

PATIENT
  Age: 76 Year
  Sex: Female

DRUGS (8)
  1. EUPRESSYL [Concomitant]
     Active Substance: URAPIDIL
  2. OXYCONTIN [Concomitant]
     Active Substance: OXYCODONE HYDROCHLORIDE
  3. PANTOPRAZOLE [Concomitant]
     Active Substance: PANTOPRAZOLE SODIUM
  4. PRIVIGEN [Suspect]
     Active Substance: HUMAN IMMUNOGLOBULIN G
     Dosage: 5TH COURSE
     Dates: start: 20140729, end: 20140731
  5. OXYNORM [Concomitant]
     Active Substance: OXYCODONE HYDROCHLORIDE
  6. LYRICA [Concomitant]
     Active Substance: PREGABALIN
  7. PRIVIGEN [Suspect]
     Active Substance: HUMAN IMMUNOGLOBULIN G
     Dosage: COURSE 4
     Route: 042
     Dates: start: 20140701, end: 20140703
  8. NEBIVOLOL [Concomitant]
     Active Substance: NEBIVOLOL

REACTIONS (3)
  - Anaemia [Recovered/Resolved]
  - Leukopenia [Recovered/Resolved]
  - Neutropenia [Recovered/Resolved]

NARRATIVE: CASE EVENT DATE: 201407
